FAERS Safety Report 12717096 (Version 2)
Quarter: 2017Q2

REPORT INFORMATION
  Report Type: Spontaneous
  Country: US (occurrence: US)
  Receive Date: 20160906
  Receipt Date: 20170519
  Transmission Date: 20170830
  Serious: Yes (Other)
  Sender: FDA-Public Use
  Company Number: US-SA-2016SA162169

PATIENT
  Age: 58 Year
  Sex: Male

DRUGS (15)
  1. VITAMIN D3 [Concomitant]
     Active Substance: CHOLECALCIFEROL
  2. ATORVASTATIN [Concomitant]
     Active Substance: ATORVASTATIN
  3. LOSARTAN. [Concomitant]
     Active Substance: LOSARTAN
  4. PRALUENT [Suspect]
     Active Substance: ALIROCUMAB
     Route: 058
     Dates: start: 201702
  5. SPIRONOLACTONE. [Concomitant]
     Active Substance: SPIRONOLACTONE
  6. CIALIS [Concomitant]
     Active Substance: TADALAFIL
  7. PRALUENT [Suspect]
     Active Substance: ALIROCUMAB
     Route: 058
  8. WARFARIN [Concomitant]
     Active Substance: WARFARIN
  9. ALIROCUMAB PREFILLED PEN [Concomitant]
     Active Substance: ALIROCUMAB
  10. ALIROCUMAB PREFILLED PEN [Concomitant]
     Active Substance: ALIROCUMAB
  11. ASPIRIN. [Concomitant]
     Active Substance: ASPIRIN
  12. CARVEDILOL. [Concomitant]
     Active Substance: CARVEDILOL
  13. COENZYME Q10 [Concomitant]
     Active Substance: UBIDECARENONE
  14. FISH OIL [Concomitant]
     Active Substance: FISH OIL
  15. ZETIA [Concomitant]
     Active Substance: EZETIMIBE

REACTIONS (6)
  - Pain [Unknown]
  - Nipple pain [Unknown]
  - Mental impairment [Unknown]
  - Dizziness [Unknown]
  - Pruritus generalised [Unknown]
  - Acne [Unknown]

NARRATIVE: CASE EVENT DATE: 201704
